FAERS Safety Report 15885745 (Version 1)
Quarter: 2019Q1

REPORT INFORMATION
  Report Type: Spontaneous
  Country: US (occurrence: US)
  Receive Date: 20190129
  Receipt Date: 20190129
  Transmission Date: 20190417
  Serious: Yes (Other)
  Sender: FDA-Public Use
  Company Number: US-THE MENTHOLATUM COMPANY-2061884

PATIENT
  Age: 82 Year
  Sex: Male
  Weight: 79.55 kg

DRUGS (1)
  1. EQUATE PAIN RELIEVING CREAM LIDOCAINE [Suspect]
     Active Substance: LIDOCAINE HYDROCHLORIDE
     Indication: ANALGESIC THERAPY
     Route: 061
     Dates: start: 20190117, end: 20190117

REACTIONS (2)
  - Application site rash [None]
  - Rash [Recovering/Resolving]

NARRATIVE: CASE EVENT DATE: 20190117
